FAERS Safety Report 9533974 (Version 2)
Quarter: 2013Q3

REPORT INFORMATION
  Report Type: Spontaneous
  Country: US (occurrence: US)
  Receive Date: 20130918
  Receipt Date: 20130918
  Transmission Date: 20140515
  Serious: No
  Sender: FDA-Public Use
  Company Number: US-PURDUE-USA-2011-0076462

PATIENT
  Age: 48 Year
  Sex: Female
  Weight: 73.47 kg

DRUGS (1)
  1. BUTRANS [Suspect]
     Indication: PAIN
     Dosage: 20 MCG, Q1H
     Route: 062
     Dates: start: 201102, end: 20111107

REACTIONS (3)
  - Rash [Recovering/Resolving]
  - Application site swelling [Unknown]
  - Application site erythema [Unknown]
